FAERS Safety Report 5234917-5 (Version None)
Quarter: 2007Q1

REPORT INFORMATION
  Report Type: 
  Country: None (occurrence: None)
  Receive Date: 20070209
  Receipt Date: 20070201
  Transmission Date: 20070707
  Serious: Yes (Other)
  Sender: FDA-Public Use
  Company Number: US-PFIZER INC-2007009003

PATIENT
  Sex: Female
  Weight: 68 kg

DRUGS (6)
  1. CHANTIX [Suspect]
     Indication: SMOKING CESSATION THERAPY
  2. GLUCOPHAGE [Concomitant]
     Indication: DIABETES MELLITUS
  3. AVANDIA [Concomitant]
     Indication: DIABETES MELLITUS
  4. AMARYL [Concomitant]
     Indication: DIABETES MELLITUS
  5. LOTREL [Concomitant]
     Indication: HYPERTENSION
  6. FLEXERIL [Concomitant]
     Indication: PAIN

REACTIONS (1)
  - BLOOD GLUCOSE INCREASED [None]
